FAERS Safety Report 4313075-5 (Version None)
Quarter: 2004Q1

REPORT INFORMATION
  Report Type: 
  Country: None (occurrence: None)
  Receive Date: 20040305
  Receipt Date: 20040305
  Transmission Date: 20041129
  Serious: Yes (Hospitalization)
  Sender: FDA-Public Use
  Company Number: None

PATIENT
  Age: 41 Year
  Sex: Female
  Weight: 58.9676 kg

DRUGS (10)
  1. PROCRIT 40,000 UNITS ORTHO-BIOTECH [Suspect]
     Indication: ANAEMIA
     Dosage: 40,000 WEEKLY UNITS INTRAVENOUS
     Route: 042
     Dates: start: 20040114, end: 20040204
  2. PROCRIT 40,000 UNITS ORTHO-BIOTECH [Suspect]
     Indication: CARCINOMA
     Dosage: 40,000 WEEKLY UNITS INTRAVENOUS
     Route: 042
     Dates: start: 20040114, end: 20040204
  3. PROCRIT 40,000 UNITS ORTHO-BIOTECH [Suspect]
     Indication: ANAEMIA
     Dosage: 40,000 WEEKLY UNITS SUBCUTANEOUS
     Route: 058
     Dates: start: 20040216, end: 20040331
  4. PROCRIT 40,000 UNITS ORTHO-BIOTECH [Suspect]
     Indication: CARCINOMA
     Dosage: 40,000 WEEKLY UNITS SUBCUTANEOUS
     Route: 058
     Dates: start: 20040216, end: 20040331
  5. OXYCONTIN [Concomitant]
  6. DURAGESIC [Concomitant]
  7. MORPHINE [Concomitant]
  8. CELEXA [Concomitant]
  9. EPIRUBICIN [Concomitant]
  10. CYTOXAN [Concomitant]

REACTIONS (1)
  - ABDOMINAL PAIN [None]
